FAERS Safety Report 16289966 (Version 2)
Quarter: 2019Q2

REPORT INFORMATION
  Report Type: Spontaneous
  Country: US (occurrence: US)
  Receive Date: 20190509
  Receipt Date: 20190516
  Transmission Date: 20190711
  Serious: No
  Sender: FDA-Public Use
  Company Number: US-BAYER-2019-091957

PATIENT
  Age: 7 Month
  Sex: Female

DRUGS (11)
  1. SORAFENIB (RAF KINASE INHIBITOR) [Suspect]
     Active Substance: SORAFENIB
     Indication: GLIOMA
  2. VINBLASTINE [Concomitant]
     Active Substance: VINBLASTINE
     Indication: GLIOMA
  3. VINCRISTINE [Concomitant]
     Active Substance: VINCRISTINE
     Indication: GLIOMA
  4. CARBOPLATIN. [Concomitant]
     Active Substance: CARBOPLATIN
     Indication: GLIOMA
  5. TEMOZOLOMIDE. [Concomitant]
     Active Substance: TEMOZOLOMIDE
     Indication: GLIOMA
  6. BEVACIZUMAB. [Concomitant]
     Active Substance: BEVACIZUMAB
     Indication: GLIOMA
  7. PROCARBAZINE [Concomitant]
     Active Substance: PROCARBAZINE
     Indication: GLIOMA
  8. THIOGUANINE [Concomitant]
     Active Substance: THIOGUANINE
     Indication: GLIOMA
  9. LOMUSTINE. [Concomitant]
     Active Substance: LOMUSTINE
     Indication: GLIOMA
  10. EVEROLIMUS. [Concomitant]
     Active Substance: EVEROLIMUS
     Indication: GLIOMA
  11. IRINOTECAN [Concomitant]
     Active Substance: IRINOTECAN
     Indication: GLIOMA

REACTIONS (3)
  - Off label use [None]
  - Product use in unapproved indication [None]
  - Product administered to patient of inappropriate age [None]
